FAERS Safety Report 12644731 (Version 1)
Quarter: 2016Q3

REPORT INFORMATION
  Report Type: Spontaneous
  Country: US (occurrence: US)
  Receive Date: 20160811
  Receipt Date: 20160811
  Transmission Date: 20161109
  Serious: No
  Sender: FDA-Public Use
  Company Number: US-PFIZER INC-2016308896

PATIENT
  Age: 47 Year
  Sex: Male
  Weight: 148 kg

DRUGS (13)
  1. LYRICA [Suspect]
     Active Substance: PREGABALIN
     Indication: BACK PAIN
     Dosage: 600 MG,  2X/DAY
  2. ZANAFLEX [Concomitant]
     Active Substance: TIZANIDINE HYDROCHLORIDE
     Indication: PAIN IN EXTREMITY
  3. ZANAFLEX [Concomitant]
     Active Substance: TIZANIDINE HYDROCHLORIDE
     Indication: BACK PAIN
     Dosage: 4 MG, 2X/DAY (TAKE 1 TAB BY MOUTH 2-3 TIMES DAILY)
     Route: 048
  4. LOSARTAN POTASSIUM. [Concomitant]
     Active Substance: LOSARTAN POTASSIUM
     Indication: BLOOD PRESSURE ABNORMAL
     Dosage: 50 MG, 2X/DAY (TAKE 2 TABS EVERY DAY)
  5. HYDROCHLOROTHIAZIDE. [Concomitant]
     Active Substance: HYDROCHLOROTHIAZIDE
     Indication: FLUID RETENTION
     Dosage: 12.5 MG, DAILY (ONE CAPSULE EVERY MORNING)
     Route: 048
  6. LOSARTAN. [Concomitant]
     Active Substance: LOSARTAN
     Dosage: 50 MG (1 TABLET), DAILY
     Route: 048
  7. LYRICA [Suspect]
     Active Substance: PREGABALIN
     Indication: ARTHRALGIA
     Dosage: 600 MG, 2X/DAY, (300MG 2 TABS TWICE A DAY) (TAKE TWO CAPSULES TWICE A DAY)
     Route: 048
     Dates: start: 201602
  8. NORCO [Concomitant]
     Active Substance: ACETAMINOPHEN\HYDROCODONE BITARTRATE
     Indication: PAIN
     Dosage: 7.5 MG, AS NEEDED (1-2 TABS TWICE A DAY)
     Route: 048
  9. CAPSAICIN. [Concomitant]
     Active Substance: CAPSAICIN
     Indication: MYALGIA
     Dosage: UNK, AS NEEDED (3 TIMES DAILY)
     Route: 061
  10. HYDROCHLOROTHIAZIDE. [Concomitant]
     Active Substance: HYDROCHLOROTHIAZIDE
     Indication: BLOOD PRESSURE MEASUREMENT
  11. ACETAMINOPHEN W/HYDROCODONE [Concomitant]
     Active Substance: ACETAMINOPHEN\HYDROCODONE
     Dosage: 1 DF, UNK (HYDROCODONE :7.5 MG, ACETAMINOPHEN: 325 MG) (1-2 TIMES DAILY)
     Route: 048
  12. OXYCODONE WITH APAP [Concomitant]
     Active Substance: ACETAMINOPHEN\OXYCODONE HYDROCHLORIDE
     Indication: PAIN
     Dosage: UNK, AS NEEDED (OXYCODONE: 10 MG, ACETAMINOPHEN: 325 MG) (TAKE 1-2 TABS EVERY 4-6 HRS)
     Route: 048
  13. HYDROCODONE [Concomitant]
     Active Substance: HYDROCODONE
     Dosage: UNK, AS NEEDED (PRN)

REACTIONS (3)
  - Drug effect incomplete [Unknown]
  - Weight increased [Unknown]
  - Prescribed overdose [Unknown]
